FAERS Safety Report 7106579-3 (Version None)
Quarter: 2010Q4

REPORT INFORMATION
  Report Type: 
  Country: None (occurrence: None)
  Receive Date: 20101116
  Receipt Date: 20101111
  Transmission Date: 20110411
  Serious: Yes (Death, Hospitalization)
  Sender: FDA-Public Use
  Company Number: US-B.I. PHARMACEUTICALS,INC./RIDGEFIELD-2010-BP-12135BP

PATIENT
  Age: 34 Year
  Sex: Male
  Weight: 70.3 kg

DRUGS (10)
  1. APTIVUS [Suspect]
     Indication: HIV INFECTION
     Dosage: 1000
     Dates: start: 20100701
  2. APTIVUS [Suspect]
     Indication: ACQUIRED IMMUNODEFICIENCY SYNDROME
  3. DIFLUCAN [Concomitant]
     Dosage: 100 G
     Dates: start: 20101026, end: 20101028
  4. NORVASC [Concomitant]
     Dates: start: 20100701
  5. TRUVADA [Concomitant]
     Dates: start: 20100701
  6. MEGACE [Concomitant]
     Dosage: 10 ML
  7. METRONIZADOLE [Concomitant]
     Dosage: 5 G
  8. ZITHROMAX [Concomitant]
  9. VALCYTE [Concomitant]
  10. MICONAZOLE [Concomitant]

REACTIONS (1)
  - HAEMORRHAGE INTRACRANIAL [None]
